FAERS Safety Report 18948071 (Version 1)
Quarter: 2021Q1

REPORT INFORMATION
  Report Type: Spontaneous
  Country: FR (occurrence: FR)
  Receive Date: 20210226
  Receipt Date: 20210226
  Transmission Date: 20210420
  Serious: Yes (Hospitalization, Congenital Anomaly)
  Sender: FDA-Public Use
  Company Number: FR-US-PROVELL PHARMACEUTICALS LLC-E2B_90082474

PATIENT
  Sex: Male

DRUGS (4)
  1. LEVOTHYROX 50 [Suspect]
     Active Substance: LEVOTHYROXINE
     Indication: HYPOTHYROIDISM
     Route: 064
  2. LAMICTAL [Suspect]
     Active Substance: LAMOTRIGINE
     Indication: BIPOLAR DISORDER
     Route: 064
  3. XEROQUEL [Suspect]
     Active Substance: QUETIAPINE FUMARATE
     Indication: BIPOLAR DISORDER
     Route: 064
  4. COLCHICINE. [Suspect]
     Active Substance: COLCHICINE
     Indication: POLYCHONDRITIS
     Route: 064

REACTIONS (2)
  - Dysmorphism [Not Recovered/Not Resolved]
  - Laryngomalacia [Not Recovered/Not Resolved]

NARRATIVE: CASE EVENT DATE: 20200512
